FAERS Safety Report 9208040 (Version 2)
Quarter: 2013Q3

REPORT INFORMATION
  Report Type: Report from Study
  Country: US (occurrence: US)
  Receive Date: 20130403
  Receipt Date: 20130729
  Transmission Date: 20140515
  Serious: Yes (Hospitalization)
  Sender: FDA-Public Use
  Company Number: US-ACTELION-A-US2013-81318

PATIENT
  Age: 81 Year
  Sex: Female

DRUGS (15)
  1. TRACLEER [Suspect]
     Indication: PULMONARY ARTERIAL HYPERTENSION
     Dosage: 125 MG, UNK
     Route: 048
     Dates: start: 2010
  2. TRACLEER [Suspect]
     Dosage: UNK UNK, BID
     Route: 048
  3. VIAGRA [Concomitant]
     Dosage: 20 MG, UNK
     Route: 048
     Dates: start: 2008
  4. POTASSIUM [Concomitant]
     Dosage: 10 MEQ, BID
     Route: 048
     Dates: start: 2008
  5. OMEPRAZOLE [Concomitant]
     Dosage: 20 MG, UNK
     Route: 048
     Dates: start: 2008
  6. SPIRONOLACTONE W/HYDROCHLOROTHIAZIDE [Concomitant]
     Dosage: 25 MG, UNK
     Route: 048
     Dates: start: 2008
  7. FUROSEMIDE [Concomitant]
     Dosage: 40 MG, PRN
     Route: 048
     Dates: start: 2008
  8. CALCITRIOL [Concomitant]
     Dosage: 5 MG, UNK
     Route: 048
     Dates: start: 2008
  9. CARVEDILOL [Concomitant]
     Dosage: 25 MG, UNK
     Route: 048
     Dates: start: 2008
  10. CLOPIDOGREL [Concomitant]
     Dosage: 75 MG, QD
     Route: 048
     Dates: start: 2008
  11. PREDNISONE [Concomitant]
     Dosage: 10 MG, QD
     Route: 048
     Dates: start: 2008
  12. ALPRAZOLAM [Concomitant]
     Dosage: 25 MG, TID
     Route: 048
     Dates: start: 2008
  13. CALCIUM [Concomitant]
     Dosage: UNK, QD
     Route: 048
     Dates: start: 2008
  14. VITAMIN D [Concomitant]
     Dosage: 4,000 UNITS WEEKLY
     Route: 048
     Dates: start: 2008
  15. ASPIRIN [Concomitant]
     Dosage: 325 MG, QD
     Route: 048
     Dates: start: 2008

REACTIONS (3)
  - Spinal fracture [Unknown]
  - Lower limb fracture [Recovered/Resolved]
  - Fall [Recovered/Resolved]
